FAERS Safety Report 10247507 (Version 1)
Quarter: 2014Q2

REPORT INFORMATION
  Report Type: Spontaneous
  Country: GB (occurrence: GB)
  Receive Date: 20140619
  Receipt Date: 20140619
  Transmission Date: 20141212
  Serious: Yes (Other)
  Sender: FDA-Public Use
  Company Number: GB-PFIZER INC-2014165442

PATIENT
  Age: 31 Year
  Sex: Female

DRUGS (2)
  1. PIROXICAM [Suspect]
     Dosage: 1 DF, 3X/DAY
  2. METHOTREXATE [Concomitant]
     Dosage: 2.5 MG, UNK

REACTIONS (3)
  - Yellow skin [Recovered/Resolved]
  - Skin burning sensation [Recovered/Resolved]
  - Rash [Recovered/Resolved]
